FAERS Safety Report 22537940 (Version 3)
Quarter: 2023Q2

REPORT INFORMATION
  Report Type: Report from Study
  Country: US (occurrence: US)
  Receive Date: 20230608
  Receipt Date: 20230616
  Transmission Date: 20230722
  Serious: Yes (Life-Threatening, Hospitalization)
  Sender: FDA-Public Use
  Company Number: US-BoehringerIngelheim-2023-BI-236299

PATIENT
  Age: 67 Year
  Sex: Female
  Weight: 68.3 kg

DRUGS (17)
  1. INVESTIGATIONAL PRODUCT [Suspect]
     Active Substance: INVESTIGATIONAL PRODUCT
     Indication: Chronic kidney disease
     Route: 048
     Dates: start: 20230222, end: 20230518
  2. EMPAGLIFLOZIN [Suspect]
     Active Substance: EMPAGLIFLOZIN
     Indication: Chronic kidney disease
     Route: 048
     Dates: start: 20221228, end: 20230518
  3. COSYNTROPIN HEXAACETATE [Suspect]
     Active Substance: COSYNTROPIN HEXAACETATE
     Indication: Chronic kidney disease
     Route: 030
     Dates: start: 20221207
  4. FUROSEMIDE [Suspect]
     Active Substance: FUROSEMIDE
     Indication: Hypertension
     Route: 048
     Dates: start: 20080101, end: 20230512
  5. DOXAZOSIN [Concomitant]
     Active Substance: DOXAZOSIN MESYLATE
     Indication: Hypertension
     Route: 048
     Dates: start: 20080101
  6. HYDRALAZINE [Concomitant]
     Active Substance: HYDRALAZINE HYDROCHLORIDE
     Indication: Hypertension
     Route: 048
     Dates: start: 20080101
  7. LORATADINE [Concomitant]
     Active Substance: LORATADINE
     Indication: Allergy prophylaxis
     Route: 048
     Dates: start: 20080101
  8. LOVASTATIN [Concomitant]
     Active Substance: LOVASTATIN
     Indication: Hyperlipidaemia
     Route: 048
     Dates: start: 20080101, end: 20230512
  9. METOPROLOL TARTRATE [Concomitant]
     Active Substance: METOPROLOL TARTRATE
     Indication: Hypertension
     Route: 048
     Dates: start: 20080101
  10. XARELTO [Concomitant]
     Active Substance: RIVAROXABAN
     Indication: Arteriosclerosis coronary artery
     Route: 048
     Dates: start: 20080101, end: 20230511
  11. XARELTO [Concomitant]
     Active Substance: RIVAROXABAN
     Route: 048
     Dates: start: 20230512
  12. TYLENOL [Concomitant]
     Active Substance: ACETAMINOPHEN
     Indication: Pain
     Route: 048
     Dates: start: 20100101
  13. FERROUS SULFATE [Concomitant]
     Active Substance: FERROUS SULFATE
     Indication: Anaemia
     Route: 048
     Dates: start: 20110101
  14. ALLOPURINOL [Concomitant]
     Active Substance: ALLOPURINOL
     Indication: Gout
     Route: 048
     Dates: start: 20180101
  15. CALCITRIOL [Concomitant]
     Active Substance: CALCITRIOL
     Indication: Secondary hyperthyroidism
     Route: 048
     Dates: start: 20180101
  16. ATORVASTATIN [Concomitant]
     Active Substance: ATORVASTATIN
     Indication: Hyperlipidaemia
     Route: 048
     Dates: start: 20230513
  17. MELATONIN [Concomitant]
     Active Substance: MELATONIN
     Indication: Sleep disorder
     Route: 048
     Dates: start: 20230513, end: 20230514

REACTIONS (2)
  - Hyperkalaemia [Recovered/Resolved]
  - Hyponatraemia [Recovered/Resolved]

NARRATIVE: CASE EVENT DATE: 20230508
